FAERS Safety Report 13785101 (Version 1)
Quarter: 2017Q3

REPORT INFORMATION
  Report Type: Report from Study
  Country: CA (occurrence: CA)
  Receive Date: 20170725
  Receipt Date: 20170725
  Transmission Date: 20171127
  Serious: Yes (Death)
  Sender: FDA-Public Use
  Company Number: PHHY2017CA108913

PATIENT
  Sex: Male

DRUGS (1)
  1. ZOMETA [Suspect]
     Active Substance: ZOLEDRONIC ACID
     Indication: COLON CANCER
     Dosage: 4 MG, QMO (EVERY 4 WEEKS)
     Route: 065
     Dates: start: 2016

REACTIONS (2)
  - Death [Fatal]
  - Product use in unapproved indication [Unknown]
